FAERS Safety Report 18522209 (Version 3)
Quarter: 2020Q4

REPORT INFORMATION
  Report Type: Spontaneous
  Country: US (occurrence: US)
  Receive Date: 20201119
  Receipt Date: 20201203
  Transmission Date: 20210114
  Serious: No
  Sender: FDA-Public Use
  Company Number: US-HORIZON-2020HZN01338

PATIENT
  Age: 35 Year
  Sex: Female
  Weight: 48 kg

DRUGS (3)
  1. MULTIVITAMIN [Concomitant]
     Active Substance: VITAMINS
  2. METHIMAZOLE. [Concomitant]
     Active Substance: METHIMAZOLE
     Dates: start: 201703
  3. TEPEZZA [Suspect]
     Active Substance: TEPROTUMUMAB-TRBW
     Indication: HYPERTHYROIDISM
     Dosage: INFUSE 90MG INTRAVENOUS / EVERY 3 WEEKS
     Route: 050
     Dates: start: 20201020

REACTIONS (5)
  - Muscle spasms [Unknown]
  - Fatigue [Recovered/Resolved]
  - Arthralgia [Unknown]
  - Ear discomfort [Recovered/Resolved]
  - Paraesthesia [Recovered/Resolved]

NARRATIVE: CASE EVENT DATE: 202010
